FAERS Safety Report 6043107-8 (Version None)
Quarter: 2009Q1

REPORT INFORMATION
  Report Type: 
  Country: None (occurrence: None)
  Receive Date: 20090119
  Receipt Date: 20090108
  Transmission Date: 20090719
  Serious: Yes (Death, Hospitalization)
  Sender: FDA-Public Use
  Company Number: MY-PFIZER INC-2008090444

PATIENT

DRUGS (1)
  1. SULPERAZON [Suspect]
     Dosage: QID DAILY
     Route: 042

REACTIONS (2)
  - HAEMORRHAGE [None]
  - HYPOPROTHROMBINAEMIA [None]
